FAERS Safety Report 24366301 (Version 3)
Quarter: 2024Q4

REPORT INFORMATION
  Report Type: Spontaneous
  Country: ES (occurrence: ES)
  Receive Date: 20240926
  Receipt Date: 20241203
  Transmission Date: 20250114
  Serious: Yes (Other)
  Sender: OTSUKA
  Company Number: ES-OTSUKA-2024_026199

PATIENT
  Age: 19 Year
  Sex: Male

DRUGS (7)
  1. ABILIFY [Suspect]
     Active Substance: ARIPIPRAZOLE
     Indication: Product used for unknown indication
     Dosage: 30 MG, QD (UP TO 30MG)
     Route: 065
     Dates: start: 20231227
  2. ABILIFY [Suspect]
     Active Substance: ARIPIPRAZOLE
     Dosage: 20 MG (DECREASED TO 20MG)
     Route: 065
     Dates: start: 202405
  3. BREXPIPRAZOLE [Suspect]
     Active Substance: BREXPIPRAZOLE
     Indication: Psychotic disorder
     Dosage: 1 MG (FIRST WEEK)
     Route: 065
     Dates: start: 20240604
  4. BREXPIPRAZOLE [Suspect]
     Active Substance: BREXPIPRAZOLE
     Dosage: 3 MG (SECOND WEEK)
     Route: 065
     Dates: start: 20240611
  5. BREXPIPRAZOLE [Suspect]
     Active Substance: BREXPIPRAZOLE
     Dosage: 4 MG
     Route: 065
     Dates: start: 20240625
  6. LITHIUM CARBONATE [Concomitant]
     Active Substance: LITHIUM CARBONATE
     Indication: Product used for unknown indication
     Dosage: 400 MG, BID
     Route: 065
     Dates: start: 202312
  7. LITHIUM CARBONATE [Concomitant]
     Active Substance: LITHIUM CARBONATE
     Dosage: 800 MG, BID (INCREASED UP TO 800 MG)
     Route: 065
     Dates: start: 202406

REACTIONS (3)
  - Hepatic enzyme increased [Not Recovered/Not Resolved]
  - Weight increased [Not Recovered/Not Resolved]
  - Off label use [Not Recovered/Not Resolved]

NARRATIVE: CASE EVENT DATE: 20240601
